FAERS Safety Report 12447919 (Version 1)
Quarter: 2016Q2

REPORT INFORMATION
  Report Type: Spontaneous
  Country: FR (occurrence: FR)
  Receive Date: 20160608
  Receipt Date: 20160608
  Transmission Date: 20160815
  Serious: Yes (Other)
  Sender: FDA-Public Use
  Company Number: FR-GUERBET LLC-1053517

PATIENT
  Age: 55 Year
  Sex: Female
  Weight: 75 kg

DRUGS (1)
  1. OPTIJECT 350(IOVERSOL)(SOLUTION FOR INJECTION), OPTIRAY [Suspect]
     Active Substance: IOVERSOL
     Indication: SCAN
     Route: 042
     Dates: start: 20160510, end: 20160510

REACTIONS (3)
  - Cough [Recovered/Resolved]
  - Hypersensitivity [Recovered/Resolved]
  - Throat irritation [Recovered/Resolved]

NARRATIVE: CASE EVENT DATE: 20160510
